FAERS Safety Report 5454053-2 (Version None)
Quarter: 2007Q3

REPORT INFORMATION
  Report Type: 
  Country: None (occurrence: None)
  Receive Date: 20070917
  Receipt Date: 20061212
  Transmission Date: 20080115
  Serious: Yes (Disabling)
  Sender: FDA-Public Use
  Company Number: US-ASTRAZENECA-2006UW04485

PATIENT
  Sex: Female
  Weight: 67.3 kg

DRUGS (22)
  1. SEROQUEL [Suspect]
     Route: 048
     Dates: start: 20050117, end: 20050117
  2. RISPERDAL [Suspect]
     Route: 048
     Dates: start: 19971010
  3. LIBRIUM [Suspect]
     Route: 048
     Dates: start: 19961101
  4. PAXIL [Suspect]
     Indication: AFFECTIVE DISORDER
     Route: 048
     Dates: start: 19970725
  5. PAXIL [Suspect]
     Route: 048
     Dates: start: 20040820
  6. PAXIL [Suspect]
     Route: 048
     Dates: start: 20040823
  7. PAXIL [Suspect]
     Route: 048
     Dates: start: 20040914
  8. PAXIL [Suspect]
     Route: 048
     Dates: start: 20041213
  9. PAXIL [Suspect]
     Route: 048
     Dates: start: 20041218
  10. PAXIL [Suspect]
     Route: 048
     Dates: start: 20050111
  11. PAXIL [Suspect]
     Route: 048
     Dates: start: 20050325
  12. SERZONE [Suspect]
     Indication: MAJOR DEPRESSION
     Route: 048
     Dates: start: 19971006, end: 19971010
  13. SERZONE [Suspect]
     Route: 048
     Dates: start: 19971010
  14. SERZONE [Suspect]
     Route: 048
     Dates: start: 19971010
  15. LIBRAX [Suspect]
     Route: 048
     Dates: start: 20050111
  16. SOLU-MEDROL [Suspect]
     Route: 042
     Dates: start: 20040617, end: 20040619
  17. METHYLPREDNISOLONE [Suspect]
     Route: 042
  18. METHYLPREDNISOLONE [Suspect]
     Route: 042
     Dates: start: 20041215, end: 20041217
  19. ELAVIL [Concomitant]
     Route: 048
     Dates: start: 20050111
  20. ATIVAN [Concomitant]
     Route: 042
     Dates: start: 20050111
  21. MELLARIL [Concomitant]
  22. LEXAPRO [Concomitant]
     Route: 048

REACTIONS (1)
  - DIABETES MELLITUS [None]
